FAERS Safety Report 8433223-5 (Version None)
Quarter: 2012Q2

REPORT INFORMATION
  Report Type: 
  Country: None (occurrence: None)
  Receive Date: 20120613
  Receipt Date: 20120611
  Transmission Date: 20120825
  Serious: Yes (Death)
  Sender: FDA-Public Use
  Company Number: DE-GLAXOSMITHKLINE-D0075870A

PATIENT
  Age: 74 Year
  Sex: Male

DRUGS (6)
  1. VIMPAT [Concomitant]
     Dosage: 100MG TWICE PER DAY
     Route: 065
  2. LEVETIRACETAM [Concomitant]
     Dosage: 1000MG TWICE PER DAY
     Route: 065
  3. POTIGA [Suspect]
     Indication: EPILEPSY
     Dosage: 50MG TWICE PER DAY
     Route: 048
     Dates: start: 20120301
  4. VALPROIC ACID [Concomitant]
     Dosage: 750MG PER DAY
     Route: 065
  5. TRIMIPRAMINE MALEATE [Concomitant]
     Dosage: 12.5MG TWICE PER DAY
     Route: 065
  6. TAMSULOSIN HCL [Concomitant]
     Dosage: .4MG AT NIGHT
     Route: 065

REACTIONS (1)
  - COMPLETED SUICIDE [None]
